FAERS Safety Report 7578944-1 (Version None)
Quarter: 2011Q2

REPORT INFORMATION
  Report Type: 
  Country: None (occurrence: None)
  Receive Date: 20110628
  Receipt Date: 20110620
  Transmission Date: 20111010
  Serious: Yes (Other)
  Sender: FDA-Public Use
  Company Number: JP-ASTRAZENECA-2011SE33678

PATIENT
  Age: 13150 Day
  Sex: Male

DRUGS (26)
  1. URSO 250 [Concomitant]
     Route: 048
     Dates: start: 20110506
  2. ALBUMIN (HUMAN) [Concomitant]
     Dates: start: 20110503, end: 20110505
  3. LENDORMIN [Concomitant]
     Route: 048
     Dates: start: 20110412
  4. BASEN [Concomitant]
     Route: 048
     Dates: start: 20110415
  5. FUNGUARD [Concomitant]
     Indication: CANDIDA PNEUMONIA
     Dates: start: 20110422
  6. AMBISOME [Suspect]
     Indication: ZYGOMYCOSIS
     Route: 065
     Dates: start: 20110428, end: 20110506
  7. AMBISOME [Suspect]
     Route: 065
     Dates: start: 20110512
  8. ALBUMIN (HUMAN) [Concomitant]
     Dates: start: 20110503, end: 20110505
  9. HUMALOG [Concomitant]
     Indication: TYPE 1 DIABETES MELLITUS
     Route: 058
     Dates: start: 20110407
  10. TIEPENEM [Concomitant]
     Indication: PYOTHORAX
     Dates: start: 20110506, end: 20110509
  11. ZOSYN [Concomitant]
     Indication: PYOTHORAX
     Dates: start: 20110509
  12. AMBISOME [Suspect]
     Indication: CANDIDA PNEUMONIA
     Route: 065
     Dates: start: 20110428, end: 20110506
  13. ALBUMIN (HUMAN) [Concomitant]
     Indication: HYPOALBUMINAEMIA
     Dates: start: 20110406, end: 20110410
  14. METFORMIN HCL [Concomitant]
     Route: 048
     Dates: start: 20110415
  15. ITRACONAZOLE [Concomitant]
     Route: 048
     Dates: start: 20110418, end: 20110423
  16. LASIX [Concomitant]
     Indication: OEDEMA
     Route: 048
     Dates: start: 20110420, end: 20110422
  17. GASMOTIN [Concomitant]
     Route: 048
     Dates: start: 20110425
  18. NEO-MINOPHAGEN C [Concomitant]
     Route: 042
     Dates: start: 20110506
  19. FAMOTIDINE [Concomitant]
     Route: 048
     Dates: start: 20110515
  20. ACTOS [Concomitant]
     Route: 048
     Dates: start: 20110415
  21. SULFAMETHOXAZOLE [Concomitant]
     Indication: ACTINOMYCOSIS
     Route: 048
     Dates: start: 20110418, end: 20110511
  22. MEROPENEM [Suspect]
     Indication: PYOTHORAX
     Route: 042
     Dates: start: 20110418, end: 20110506
  23. LANTUS [Concomitant]
     Indication: TYPE 1 DIABETES MELLITUS
     Route: 058
     Dates: start: 20110405, end: 20110406
  24. AMBISOME [Suspect]
     Route: 065
     Dates: start: 20110512
  25. LANTUS [Concomitant]
     Route: 058
     Dates: start: 20110412
  26. ALBUMIN (HUMAN) [Concomitant]
     Indication: MALNUTRITION
     Dates: start: 20110406, end: 20110410

REACTIONS (2)
  - BLOOD ALKALINE PHOSPHATASE INCREASED [None]
  - HYPERTRANSAMINASAEMIA [None]
